FAERS Safety Report 11074200 (Version 1)
Quarter: 2015Q2

REPORT INFORMATION
  Report Type: Report from Study
  Country: US (occurrence: US)
  Receive Date: 20150429
  Receipt Date: 20150429
  Transmission Date: 20150821
  Serious: Yes (Hospitalization)
  Sender: FDA-Public Use
  Company Number: US-AMGEN-USASL2015040696

PATIENT
  Age: 56 Year
  Sex: Female
  Weight: 79.37 kg

DRUGS (7)
  1. RELAFEN [Concomitant]
     Active Substance: NABUMETONE
     Dosage: 500 MG, UNK
  2. LEUCOVORIN CA [Concomitant]
     Dosage: 5 MG, UNK
  3. TRAZODONE [Concomitant]
     Active Substance: TRAZODONE HYDROCHLORIDE
     Dosage: 50 MG, UNK
  4. METHOTREXATE [Concomitant]
     Active Substance: METHOTREXATE
     Dosage: 25 MG/ML, UNK
  5. PREDNISONE. [Suspect]
     Active Substance: PREDNISONE
     Indication: PRODUCT USED FOR UNKNOWN INDICATION
     Dosage: UNK
     Route: 065
  6. FOLIC ACID. [Concomitant]
     Active Substance: FOLIC ACID
     Dosage: 1 MG, UNK
  7. ENBREL [Suspect]
     Active Substance: ETANERCEPT
     Indication: PRODUCT USED FOR UNKNOWN INDICATION
     Dosage: 50 MG, QWK
     Route: 058
     Dates: start: 201002, end: 201504

REACTIONS (4)
  - Pain [Unknown]
  - Asthma [Unknown]
  - Blood glucose increased [Unknown]
  - Osteopenia [Unknown]
